FAERS Safety Report 7338574-3 (Version None)
Quarter: 2011Q1

REPORT INFORMATION
  Report Type: 
  Country: None (occurrence: None)
  Receive Date: 20110308
  Receipt Date: 20110223
  Transmission Date: 20110831
  Serious: Yes (Hospitalization, Other)
  Sender: FDA-Public Use
  Company Number: FR-ELI_LILLY_AND_COMPANY-FR201103001478

PATIENT
  Sex: Male

DRUGS (2)
  1. CYMBALTA [Suspect]
     Indication: DEPRESSION
     Dosage: UNK, UNK
     Route: 048
     Dates: start: 20080320, end: 20080423
  2. MODOPAR [Concomitant]
     Indication: PARKINSONISM
     Dosage: 62.5 MG, 2/D
     Route: 048
     Dates: start: 20080320

REACTIONS (6)
  - MITRAL VALVE INCOMPETENCE [None]
  - TRANSIENT ISCHAEMIC ATTACK [None]
  - MALAISE [None]
  - LEFT VENTRICULAR DYSFUNCTION [None]
  - ARTERIOSCLEROSIS [None]
  - CONVULSION [None]
